FAERS Safety Report 8516672-6 (Version None)
Quarter: 2012Q2

REPORT INFORMATION
  Report Type: 
  Country: None (occurrence: None)
  Receive Date: 20120406
  Receipt Date: 20101112
  Transmission Date: 20120825
  Serious: Yes (Other)
  Sender: FDA-Public Use
  Company Number: PHHY2010US76888

PATIENT
  Sex: Female

DRUGS (2)
  1. PREDNISONE TAB [Concomitant]
  2. TASIGNA [Suspect]
     Dosage: 150 MG, UNK
     Dates: start: 20100801

REACTIONS (1)
  - PLATELET COUNT DECREASED [None]
